FAERS Safety Report 16188836 (Version 1)
Quarter: 2019Q2

REPORT INFORMATION
  Report Type: Spontaneous
  Country: US (occurrence: US)
  Receive Date: 20190411
  Receipt Date: 20190411
  Transmission Date: 20190711
  Serious: Yes (Life-Threatening, Hospitalization, Disabling)
  Sender: FDA-Public Use
  Company Number: None

PATIENT
  Age: 32 Year
  Sex: Female
  Weight: 121.5 kg

DRUGS (8)
  1. CHANTIX [Suspect]
     Active Substance: VARENICLINE TARTRATE
     Indication: SMOKING CESSATION THERAPY
     Dates: start: 20181120, end: 20181209
  2. VERAPAMIL 120MG, [Concomitant]
  3. CHANTIX [Suspect]
     Active Substance: VARENICLINE TARTRATE
     Indication: CORNEAL EROSION
     Dates: start: 20181120, end: 20181209
  4. PROMETHAZINE 25MG [Concomitant]
  5. PRESERVATIVE-FREE TEARS [Concomitant]
  6. TRAMADOL 50MG, 50 MG ZYDUS [Concomitant]
     Active Substance: TRAMADOL
  7. CYCLOBENZAPRINE 10MG, [Concomitant]
  8. TEMAZEPAM 15MG, [Concomitant]

REACTIONS (4)
  - Influenza [None]
  - Diplopia [None]
  - Toxic epidermal necrolysis [None]
  - Dry eye [None]

NARRATIVE: CASE EVENT DATE: 20181209
